FAERS Safety Report 7777337-1 (Version None)
Quarter: 2011Q3

REPORT INFORMATION
  Report Type: 
  Country: None (occurrence: None)
  Receive Date: 20110926
  Receipt Date: 20110921
  Transmission Date: 20111222
  Serious: Yes (Life-Threatening, Hospitalization)
  Sender: FDA-Public Use
  Company Number: PHHY2011FR84005

PATIENT
  Sex: Female

DRUGS (9)
  1. SECTRAL [Concomitant]
     Dosage: UNK UKN, UNK
  2. VOGALENE [Concomitant]
     Dosage: UNK UKN, UNK
  3. CISPLATIN [Suspect]
     Dosage: 164 MG ONCE
     Dates: start: 20110323
  4. ESOMEPRAZOLE SODIUM [Concomitant]
     Dosage: UNK UKN, UNK
  5. ETOPOSIDE [Suspect]
     Dosage: 100 MG/M2 ONCE
     Dates: start: 20110323
  6. LASIX [Suspect]
     Indication: OEDEMA PERIPHERAL
     Dosage: 40 MG, QD
     Dates: start: 20110301, end: 20110403
  7. EMEND [Concomitant]
     Dosage: UNK UKN, UNK
  8. ATARAX [Concomitant]
     Dosage: UNK UKN, UNK
  9. VALSARTAN [Suspect]
     Dosage: 80 MG, QD
     Dates: start: 20101001, end: 20110403

REACTIONS (8)
  - DIARRHOEA [None]
  - NAUSEA [None]
  - HYPOTENSION [None]
  - RENAL FAILURE ACUTE [None]
  - BLOOD UREA INCREASED [None]
  - VOMITING [None]
  - HYPOTHERMIA [None]
  - BLOOD CREATININE INCREASED [None]
